FAERS Safety Report 8607870-1 (Version None)
Quarter: 2012Q3

REPORT INFORMATION
  Report Type: 
  Country: None (occurrence: None)
  Receive Date: 20120821
  Receipt Date: 20120817
  Transmission Date: 20120928
  Serious: Yes (Hospitalization, Other)
  Sender: FDA-Public Use
  Company Number: PHHY2011AU68304

PATIENT
  Sex: Female

DRUGS (4)
  1. MICARDIS [Concomitant]
     Indication: HYPERTENSION
     Dosage: UNK UKN, QD
     Route: 048
     Dates: start: 20100723
  2. ZOLEDRONOC ACID [Suspect]
     Indication: OSTEOPOROSIS
     Dosage: 5 MG, UNK
     Route: 042
     Dates: start: 20110706
  3. ASPIRIN [Concomitant]
     Dosage: 100 MG DAILY
     Route: 048
     Dates: end: 20110803
  4. SIMVASTATIN [Concomitant]
     Dosage: 80 MG, UNK
     Route: 048

REACTIONS (9)
  - RHINITIS [None]
  - INFLUENZA LIKE ILLNESS [None]
  - CYTOKINE STORM [None]
  - HAEMOLYSIS [None]
  - PYREXIA [None]
  - GLOMERULAR FILTRATION RATE DECREASED [None]
  - PLATELET COUNT INCREASED [None]
  - ANISOCYTOSIS [None]
  - PAIN [None]
